FAERS Safety Report 7327642-8 (Version None)
Quarter: 2011Q1

REPORT INFORMATION
  Report Type: 
  Country: None (occurrence: None)
  Receive Date: 20110303
  Receipt Date: 20100914
  Transmission Date: 20110831
  Serious: Yes (Other)
  Sender: FDA-Public Use
  Company Number: US-BAYER-201024385NA

PATIENT
  Sex: Female
  Weight: 54 kg

DRUGS (2)
  1. RESTORIL [Concomitant]
     Indication: SLEEP DISORDER
  2. YAZ [Suspect]
     Indication: ORAL CONTRACEPTION
     Route: 048
     Dates: start: 20071001, end: 20080315

REACTIONS (12)
  - HEMIPARESIS [None]
  - HEADACHE [None]
  - CEREBROVASCULAR ACCIDENT [None]
  - MIGRAINE [None]
  - FEELING ABNORMAL [None]
  - DYSPNOEA [None]
  - APHASIA [None]
  - NAUSEA [None]
  - ISCHAEMIC CEREBRAL INFARCTION [None]
  - VISION BLURRED [None]
  - ABNORMAL BEHAVIOUR [None]
  - HYPOAESTHESIA [None]
